FAERS Safety Report 26107721 (Version 2)
Quarter: 2025Q4

REPORT INFORMATION
  Report Type: Report from Study
  Country: US (occurrence: US)
  Receive Date: 20251201
  Receipt Date: 20251201
  Transmission Date: 20260118
  Serious: Yes (Death)
  Sender: ALEXION PHARMACEUTICALS
  Company Number: US-AstraZeneca-CH-00998423A

PATIENT
  Age: 65 Year
  Sex: Female

DRUGS (1)
  1. CAPIVASERTIB [Suspect]
     Active Substance: CAPIVASERTIB
     Indication: Breast cancer female
     Dosage: 160 MILLIGRAM, BID
     Dates: start: 202510

REACTIONS (1)
  - Death [Fatal]

NARRATIVE: CASE EVENT DATE: 20251022
